FAERS Safety Report 5511083-X (Version None)
Quarter: 2007Q4

REPORT INFORMATION
  Report Type: 
  Country: None (occurrence: None)
  Receive Date: 20071109
  Receipt Date: 20071102
  Transmission Date: 20080405
  Serious: Yes (Hospitalization)
  Sender: FDA-Public Use
  Company Number: US-ASTRAZENECA-2007UW25494

PATIENT
  Age: 26240 Day
  Sex: Male
  Weight: 73 kg

DRUGS (7)
  1. IRESSA [Suspect]
     Indication: BLADDER TRANSITIONAL CELL CARCINOMA
     Route: 048
     Dates: start: 20050725, end: 20071022
  2. IRESSA [Suspect]
     Route: 048
     Dates: start: 20071102
  3. ASACOL [Concomitant]
     Route: 048
  4. COLESTID [Concomitant]
  5. DARVON [Concomitant]
     Indication: PAIN
     Dosage: AS NEEDED
     Route: 048
  6. MAGNESIUM SULFATE [Concomitant]
     Route: 048
  7. POTASSIUM CHLORIDE [Concomitant]
     Route: 048

REACTIONS (7)
  - EMPHYSEMA [None]
  - FLANK PAIN [None]
  - INTESTINAL OBSTRUCTION [None]
  - NAUSEA [None]
  - ORAL INTAKE REDUCED [None]
  - PNEUMONIA [None]
  - VOMITING [None]
